FAERS Safety Report 4340902-8 (Version None)
Quarter: 2004Q2

REPORT INFORMATION
  Report Type: 
  Country: None (occurrence: None)
  Receive Date: 20040413
  Receipt Date: 20040331
  Transmission Date: 20050107
  Serious: Yes (Hospitalization)
  Sender: FDA-Public Use
  Company Number: 2004022325

PATIENT
  Age: 67 Year
  Sex: Female
  Weight: 100 kg

DRUGS (7)
  1. ZOLOFT [Suspect]
     Indication: DEPRESSION
     Dosage: 37.5 (DAILY), ORAL
     Route: 048
     Dates: start: 20031104
  2. KARVEA HCT (HYDROCHLOROTHIAZIDE, IRBESARTAN) [Concomitant]
  3. METOPROLOL SUCCINATE [Concomitant]
  4. MODILOC (FELODIPINE, METOPROLOL SUCCINATE) [Concomitant]
  5. DIGOXIN [Concomitant]
  6. PHENPROCOUMON (PHENPROCOUMON) [Concomitant]
  7. BETAHISTINE HYDROCHLORIDE (BETAHISTINE HYDROCHLORIDE) [Concomitant]

REACTIONS (20)
  - AMNESIA [None]
  - ANOREXIA [None]
  - BLOOD IRON DECREASED [None]
  - BLOOD OSMOLARITY DECREASED [None]
  - BLOOD POTASSIUM DECREASED [None]
  - CHEST DISCOMFORT [None]
  - DEPRESSED MOOD [None]
  - DYSARTHRIA [None]
  - ENCEPHALOPATHY [None]
  - ERYTHEMA OF EYELID [None]
  - EYELID OEDEMA [None]
  - FATIGUE [None]
  - FEELING ABNORMAL [None]
  - HAEMOGLOBIN ABNORMAL [None]
  - HICCUPS [None]
  - HYPONATRAEMIA [None]
  - INAPPROPRIATE ANTIDIURETIC HORMONE SECRETION [None]
  - NAUSEA [None]
  - RESTLESSNESS [None]
  - VERTIGO [None]
